FAERS Safety Report 23004579 (Version 9)
Quarter: 2024Q2

REPORT INFORMATION
  Report Type: Report from Study
  Country: US (occurrence: US)
  Receive Date: 20230928
  Receipt Date: 20240625
  Transmission Date: 20240715
  Serious: No
  Sender: FDA-Public Use
  Company Number: US-ACADIA PHARMACEUTICALS INC.-ACA-2023-TRF-003882

PATIENT
  Age: 25 Year
  Sex: Female

DRUGS (17)
  1. DAYBUE [Suspect]
     Active Substance: TROFINETIDE
     Indication: Rett syndrome
     Dosage: 20 MILLILITER, BID
     Route: 048
  2. DAYBUE [Suspect]
     Active Substance: TROFINETIDE
     Dosage: 25 MILLILITER, BID
     Route: 048
  3. DAYBUE [Suspect]
     Active Substance: TROFINETIDE
     Dosage: 40 MILLILITER
     Route: 048
  4. DAYBUE [Suspect]
     Active Substance: TROFINETIDE
     Dosage: 10 MILLILITER
     Route: 065
  5. DAYBUE [Suspect]
     Active Substance: TROFINETIDE
     Dosage: 20 MILLILITER
     Route: 065
  6. DAYBUE [Suspect]
     Active Substance: TROFINETIDE
     Dosage: 40 MILLILITER
     Route: 065
  7. DAYBUE [Suspect]
     Active Substance: TROFINETIDE
     Dosage: 20 MILLILITER
     Route: 065
  8. DAYBUE [Suspect]
     Active Substance: TROFINETIDE
     Dosage: 40 MILLILITER, BID
     Route: 048
  9. DAYBUE [Suspect]
     Active Substance: TROFINETIDE
     Dosage: 20 MILLILITER, BID
     Route: 048
  10. DAYBUE [Suspect]
     Active Substance: TROFINETIDE
     Dosage: 40 MILLILITER, BID
     Route: 048
  11. DAYBUE [Suspect]
     Active Substance: TROFINETIDE
     Dosage: 20 MILLILITER, BID
     Route: 048
  12. DAYBUE [Suspect]
     Active Substance: TROFINETIDE
     Dosage: 40 MILLILITER, BID
     Route: 048
  13. DAYBUE [Suspect]
     Active Substance: TROFINETIDE
     Dosage: 20 MILLILITER, BID
     Route: 048
  14. DAYBUE [Suspect]
     Active Substance: TROFINETIDE
     Dosage: 40 MILLILITER, BID
     Route: 048
  15. DAYBUE [Suspect]
     Active Substance: TROFINETIDE
     Dosage: 20 MILLILITER, BID
     Route: 048
  16. DAYBUE [Suspect]
     Active Substance: TROFINETIDE
     Dosage: 40 MILLILITER, BID
     Route: 048
  17. DEPO-PROVERA [Concomitant]
     Active Substance: MEDROXYPROGESTERONE ACETATE

REACTIONS (30)
  - Faeces soft [Not Recovered/Not Resolved]
  - Eructation [Not Recovered/Not Resolved]
  - Product dose omission issue [Recovered/Resolved]
  - Ill-defined disorder [Unknown]
  - Pain [Not Recovered/Not Resolved]
  - Flatulence [Not Recovered/Not Resolved]
  - Eructation [Recovered/Resolved]
  - Gastrointestinal disorder [Not Recovered/Not Resolved]
  - Retching [Recovered/Resolved]
  - Eructation [Not Recovered/Not Resolved]
  - Flatulence [Not Recovered/Not Resolved]
  - Faeces discoloured [Not Recovered/Not Resolved]
  - Underdose [Not Recovered/Not Resolved]
  - Gastrooesophageal reflux disease [Recovered/Resolved]
  - Weight increased [Not Recovered/Not Resolved]
  - Constipation [Unknown]
  - Nausea [Recovered/Resolved]
  - Eructation [Unknown]
  - Diarrhoea [Recovering/Resolving]
  - Diarrhoea [Recovering/Resolving]
  - Anxiety [Not Recovered/Not Resolved]
  - Diarrhoea [Not Recovered/Not Resolved]
  - Diarrhoea [Not Recovered/Not Resolved]
  - Diarrhoea [Unknown]
  - Diarrhoea [Not Recovered/Not Resolved]
  - Anxiety [Not Recovered/Not Resolved]
  - Decreased appetite [Not Recovered/Not Resolved]
  - Anxiety [Unknown]
  - Vomiting [Recovered/Resolved]
  - Diarrhoea [Recovered/Resolved]

NARRATIVE: CASE EVENT DATE: 20231018
